FAERS Safety Report 17632580 (Version 1)
Quarter: 2020Q2

REPORT INFORMATION
  Report Type: Spontaneous
  Country: US (occurrence: US)
  Receive Date: 20200406
  Receipt Date: 20200406
  Transmission Date: 20200713
  Serious: Yes (Other)
  Sender: FDA-Public Use
  Company Number: NVSC2020US091599

PATIENT
  Age: 28 Year
  Sex: Male

DRUGS (2)
  1. ETOPOSIDE. [Suspect]
     Active Substance: ETOPOSIDE
     Indication: GERM CELL CANCER METASTATIC
     Dosage: UNK (HIGH DOSE)
     Route: 065
  2. CARBOPLATIN. [Suspect]
     Active Substance: CARBOPLATIN
     Indication: GERM CELL CANCER METASTATIC
     Dosage: UNK (HIGH DOSE)
     Route: 065

REACTIONS (18)
  - Renal tubular dysfunction [Unknown]
  - Pancytopenia [Unknown]
  - Pyrexia [Unknown]
  - Hypotension [Unknown]
  - Oedema [Unknown]
  - Haematuria [Unknown]
  - Nephropathy toxic [Unknown]
  - Acute kidney injury [Recovering/Resolving]
  - Sepsis [Unknown]
  - Hypokalaemia [Unknown]
  - Diarrhoea [Unknown]
  - Product use in unapproved indication [Unknown]
  - Proteinuria [Unknown]
  - Fanconi syndrome [Unknown]
  - Hypernatraemia [Unknown]
  - Polyuria [Unknown]
  - Generalised oedema [Unknown]
  - Glycosuria [Unknown]
